FAERS Safety Report 9243357 (Version 2)
Quarter: 2013Q2

REPORT INFORMATION
  Report Type: Report from Study
  Country: CA (occurrence: CA)
  Receive Date: 20130420
  Receipt Date: 20130526
  Transmission Date: 20140414
  Serious: Yes (Other)
  Sender: FDA-Public Use
  Company Number: CA-US-EMD SERONO, INC.-7205394

PATIENT
  Age: 51 Year
  Sex: Female

DRUGS (2)
  1. REBIF [Suspect]
     Indication: MULTIPLE SCLEROSIS
     Route: 058
     Dates: start: 20071107, end: 20130402
  2. REBIF [Suspect]
     Dates: start: 201304

REACTIONS (2)
  - Lymphadenopathy [Recovered/Resolved with Sequelae]
  - Infection [Recovered/Resolved]
